FAERS Safety Report 8294482-5 (Version None)
Quarter: 2012Q2

REPORT INFORMATION
  Report Type: 
  Country: None (occurrence: None)
  Receive Date: 20120418
  Receipt Date: 20120411
  Transmission Date: 20120825
  Serious: Yes (Hospitalization, Other)
  Sender: FDA-Public Use
  Company Number: JP-B.I. PHARMACEUTICALS,INC./RIDGEFIELD-2012-BP-06193NB

PATIENT
  Sex: Female
  Weight: 40 kg

DRUGS (5)
  1. FAMOTIDINE [Concomitant]
     Dosage: 20 MG
     Route: 048
  2. SIGMART [Concomitant]
     Dosage: 45 MG
     Route: 048
  3. DIART [Concomitant]
     Indication: CARDIAC FAILURE
     Dosage: 30 MG
     Route: 048
  4. PRADAXA [Suspect]
     Indication: CEREBROVASCULAR ACCIDENT PROPHYLAXIS
     Dosage: 220 MG
     Route: 048
     Dates: start: 20120319
  5. PRADAXA [Suspect]
     Indication: THROMBOSIS PROPHYLAXIS

REACTIONS (2)
  - PNEUMONIA [None]
  - CARDIAC FAILURE [None]
